FAERS Safety Report 6815975-0 (Version None)
Quarter: 2010Q3

REPORT INFORMATION
  Report Type: 
  Country: None (occurrence: None)
  Receive Date: 20100705
  Receipt Date: 20100624
  Transmission Date: 20110219
  Serious: No
  Sender: FDA-Public Use
  Company Number: US-BIOGENIDEC-2010BI022016

PATIENT
  Sex: Female

DRUGS (2)
  1. TYSABRI [Suspect]
     Indication: MULTIPLE SCLEROSIS
     Route: 042
     Dates: start: 20061128, end: 20090923
  2. TYSABRI [Suspect]
     Route: 042
     Dates: start: 20100602

REACTIONS (3)
  - DIPLOPIA [None]
  - FALL [None]
  - MOBILITY DECREASED [None]
